FAERS Safety Report 20553223 (Version 5)
Quarter: 2022Q3

REPORT INFORMATION
  Report Type: Report from Study
  Country: CA (occurrence: CA)
  Receive Date: 20220304
  Receipt Date: 20220915
  Transmission Date: 20221026
  Serious: Yes (Hospitalization)
  Sender: FDA-Public Use
  Company Number: CA-JNJFOC-20220251187

PATIENT
  Age: 69 Year
  Sex: Female
  Weight: 54 kg

DRUGS (2)
  1. STELARA [Suspect]
     Active Substance: USTEKINUMAB
     Indication: Crohn^s disease
     Dosage: ON 24-JAN-2022 , THE PATIENT RECEIVED LAST INJECTION.?ON 24-MAR-2022, THE PATIENT COMPLETED HER PART
     Route: 058
     Dates: start: 20170410
  2. STELARA [Suspect]
     Active Substance: USTEKINUMAB

REACTIONS (7)
  - Escherichia infection [Recovering/Resolving]
  - Septic shock [Recovering/Resolving]
  - Nephrolithiasis [Recovering/Resolving]
  - Kidney infection [Recovering/Resolving]
  - Sepsis [Unknown]
  - Diarrhoea [Unknown]
  - Frequent bowel movements [Unknown]

NARRATIVE: CASE EVENT DATE: 20220101
